FAERS Safety Report 14727052 (Version 1)
Quarter: 2018Q2

REPORT INFORMATION
  Report Type: Spontaneous
  Country: US (occurrence: US)
  Receive Date: 20180402
  Receipt Date: 20180402
  Transmission Date: 20180711
  Serious: Yes (Other)
  Sender: FDA-Public Use
  Company Number: None

PATIENT
  Age: 40 Year
  Sex: Female
  Weight: 57 kg

DRUGS (7)
  1. ALENDRONATE 70 MG PO WEEKLY [Concomitant]
  2. GOSERELIN 3.6 MG SC Q 4 WEEKS [Concomitant]
  3. ASPIRIN 81 MG PO DAILY [Concomitant]
  4. NERLYNX [Suspect]
     Active Substance: NERATINIB
     Indication: BREAST CANCER
     Route: 048
     Dates: start: 20180120, end: 20180309
  5. EXEMESTANE 25 MG PO DAILY [Concomitant]
  6. LOPERAMIDE 2 MG PO BID [Concomitant]
  7. ERGOCALCIFEROL 50,000 UNITS PO DAILY [Concomitant]

REACTIONS (5)
  - Hepatic enzyme abnormal [None]
  - Fatigue [None]
  - Malaise [None]
  - Pyrexia [None]
  - Rash [None]

NARRATIVE: CASE EVENT DATE: 20180309
